FAERS Safety Report 9799306 (Version 3)
Quarter: 2014Q3

REPORT INFORMATION
  Report Type: Spontaneous
  Country: US (occurrence: US)
  Receive Date: 20140106
  Receipt Date: 20140717
  Transmission Date: 20150326
  Serious: Yes (Death, Hospitalization, Disabling, Other)
  Sender: FDA-Public Use
  Company Number: US-009507513-1401USA000723

PATIENT
  Sex: Male
  Weight: 73.61 kg

DRUGS (10)
  1. JANUMET [Suspect]
     Active Substance: METFORMIN HYDROCHLORIDE\SITAGLIPTIN PHOSPHATE
     Indication: TYPE 2 DIABETES MELLITUS
     Dosage: 1000/50MGQD
     Route: 048
     Dates: start: 20090609, end: 20111124
  2. JANUMET [Suspect]
     Active Substance: METFORMIN HYDROCHLORIDE\SITAGLIPTIN PHOSPHATE
     Dosage: 50/1000, BID
     Route: 048
     Dates: start: 20110627
  3. JANUMET [Suspect]
     Active Substance: METFORMIN HYDROCHLORIDE\SITAGLIPTIN PHOSPHATE
     Dosage: UNK
     Route: 048
     Dates: start: 20090529
  4. LASIX [Concomitant]
     Active Substance: FUROSEMIDE
     Dosage: UNK
  5. DITROPAN [Concomitant]
     Active Substance: OXYBUTYNIN CHLORIDE
     Dosage: UNK
  6. ZOCOR [Concomitant]
     Active Substance: SIMVASTATIN
     Dosage: UNK
  7. AMARYL [Concomitant]
     Active Substance: GLIMEPIRIDE
  8. LOTENSIN [Concomitant]
     Active Substance: BENAZEPRIL HYDROCHLORIDE
     Dosage: UNK
  9. JANUMET [Suspect]
     Active Substance: METFORMIN HYDROCHLORIDE\SITAGLIPTIN PHOSPHATE
     Dosage: 1000 MG, BID
     Route: 048
  10. ASPIRIN. [Concomitant]
     Active Substance: ASPIRIN
     Dosage: UNK

REACTIONS (25)
  - Pancreatic carcinoma [Fatal]
  - Atelectasis [Unknown]
  - Oedema peripheral [Unknown]
  - Benign prostatic hyperplasia [Unknown]
  - Hepatic cirrhosis [Unknown]
  - Adrenal mass [Unknown]
  - Chronic obstructive pulmonary disease [Not Recovered/Not Resolved]
  - Depression [Unknown]
  - Injury [Not Recovered/Not Resolved]
  - Metastases to liver [Unknown]
  - Pleural fibrosis [Unknown]
  - Upper motor neurone lesion [Unknown]
  - Failure to thrive [Unknown]
  - Inappropriate schedule of drug administration [Unknown]
  - Anxiety [Unknown]
  - Spinal column stenosis [Unknown]
  - Bladder catheterisation [Unknown]
  - Malnutrition [Unknown]
  - Neuropathy peripheral [Unknown]
  - Back pain [Unknown]
  - Adverse event [Not Recovered/Not Resolved]
  - Metastases to peritoneum [Unknown]
  - Cardiac failure congestive [Unknown]
  - Ascites [Unknown]
  - White blood cell count abnormal [Not Recovered/Not Resolved]

NARRATIVE: CASE EVENT DATE: 20090609
